FAERS Safety Report 8113809-8 (Version None)
Quarter: 2012Q1

REPORT INFORMATION
  Report Type: 
  Country: None (occurrence: None)
  Receive Date: 20120203
  Receipt Date: 20120127
  Transmission Date: 20120608
  Serious: Yes (Other)
  Sender: FDA-Public Use
  Company Number: US-ABBOTT-12P-163-0899495-00

PATIENT
  Age: 50 Year
  Sex: Female

DRUGS (6)
  1. BENICAR [Concomitant]
     Indication: PRODUCT USED FOR UNKNOWN INDICATION
  2. HUMIRA [Suspect]
     Indication: CROHN'S DISEASE
     Dates: start: 20070101, end: 20111116
  3. ANT-ACID [Concomitant]
     Indication: PRODUCT USED FOR UNKNOWN INDICATION
  4. WATER PILL [Concomitant]
     Indication: PRODUCT USED FOR UNKNOWN INDICATION
  5. ATENOLOL [Concomitant]
     Indication: HYPERTENSION
  6. CENESTIN [Concomitant]
     Indication: HORMONE REPLACEMENT THERAPY

REACTIONS (8)
  - THERAPEUTIC RESPONSE UNEXPECTED [None]
  - UNEVALUABLE EVENT [None]
  - HYPERTENSION [None]
  - LABORATORY TEST ABNORMAL [None]
  - NASAL DISORDER [None]
  - TONSILLECTOMY [None]
  - CROHN'S DISEASE [None]
  - LIVER DISORDER [None]
